FAERS Safety Report 15737530 (Version 2)
Quarter: 2018Q4

REPORT INFORMATION
  Report Type: Spontaneous
  Country: CA (occurrence: CA)
  Receive Date: 20181219
  Receipt Date: 20181226
  Transmission Date: 20190205
  Serious: Yes (Death)
  Sender: FDA-Public Use
  Company Number: CA-ROCHE-2232526

PATIENT
  Age: 71 Year
  Sex: Female

DRUGS (2)
  1. XOLAIR [Suspect]
     Active Substance: OMALIZUMAB
     Indication: ASTHMA
     Route: 058
     Dates: start: 20130212
  2. XOLAIR [Suspect]
     Active Substance: OMALIZUMAB
     Route: 058
     Dates: start: 20181120, end: 20181120

REACTIONS (5)
  - Asthma [Unknown]
  - Nasopharyngitis [Unknown]
  - Dyspnoea [Unknown]
  - Death [Fatal]
  - Feeling jittery [Unknown]

NARRATIVE: CASE EVENT DATE: 20130212
